FAERS Safety Report 6633023-2 (Version None)
Quarter: 2010Q1

REPORT INFORMATION
  Report Type: 
  Country: None (occurrence: None)
  Receive Date: 20100312
  Receipt Date: 20100308
  Transmission Date: 20100710
  Serious: Yes (Hospitalization)
  Sender: FDA-Public Use
  Company Number: FR-ROCHE-646600

PATIENT
  Sex: Female
  Weight: 48 kg

DRUGS (8)
  1. PEG-INTERFERON ALFA 2A (RO 25-8310) [Suspect]
     Indication: HEPATITIS C
     Route: 058
     Dates: start: 20080929, end: 20090511
  2. RIBAVIRIN [Suspect]
     Indication: HEPATITIS C
     Route: 048
     Dates: start: 20080929, end: 20090511
  3. TRUVADA [Suspect]
     Route: 048
     Dates: start: 20080401, end: 20090511
  4. KALETRA [Suspect]
     Route: 048
     Dates: start: 20080401, end: 20090511
  5. SULFAMETHOXAZOLE AND TRIMETHOPRIM [Suspect]
     Indication: PROPHYLAXIS
     Route: 048
  6. MANTADIX [Concomitant]
     Indication: DRUG USE FOR UNKNOWN INDICATION
  7. NEORECORMON [Concomitant]
     Indication: ANAEMIA
     Route: 058
     Dates: start: 20081119
  8. DOLIPRANE [Concomitant]
     Route: 048

REACTIONS (4)
  - HAEMOLYTIC ANAEMIA [None]
  - LYMPHOPENIA [None]
  - RENAL FAILURE ACUTE [None]
  - THROMBOCYTOPENIA [None]
